FAERS Safety Report 8236087-8 (Version None)
Quarter: 2012Q1

REPORT INFORMATION
  Report Type: 
  Country: None (occurrence: None)
  Receive Date: 20120327
  Receipt Date: 20120316
  Transmission Date: 20120608
  Serious: Yes (Hospitalization)
  Sender: FDA-Public Use
  Company Number: US-BIOGENIDEC-2011BI042638

PATIENT
  Age: 53 Year
  Sex: Male

DRUGS (1)
  1. TYSABRI [Suspect]
     Indication: MULTIPLE SCLEROSIS
     Route: 042
     Dates: start: 20080805

REACTIONS (11)
  - BACK PAIN [None]
  - PAIN IN EXTREMITY [None]
  - INSOMNIA [None]
  - BURNING SENSATION [None]
  - MOVEMENT DISORDER [None]
  - COORDINATION ABNORMAL [None]
  - ERYTHEMA [None]
  - LUMBAR SPINAL STENOSIS [None]
  - OEDEMA PERIPHERAL [None]
  - PAIN [None]
  - GAIT DISTURBANCE [None]
